FAERS Safety Report 9133143 (Version 1)
Quarter: 2013Q1

REPORT INFORMATION
  Report Type: Spontaneous
  Country: JP (occurrence: JP)
  Receive Date: 20130116
  Receipt Date: 20130116
  Transmission Date: 20140127
  Serious: Yes (Other)
  Sender: FDA-Public Use
  Company Number: JP-TEVA-379598USA

PATIENT
  Age: 73 Year
  Sex: Female

DRUGS (1)
  1. TREANDA [Suspect]
     Indication: MANTLE CELL LYMPHOMA
     Route: 042
     Dates: start: 20110121, end: 20120214

REACTIONS (11)
  - Vasculitis [Recovered/Resolved]
  - Nausea [Not Recovered/Not Resolved]
  - Pyrexia [Not Recovered/Not Resolved]
  - Rash [Not Recovered/Not Resolved]
  - White blood cell count decreased [Recovering/Resolving]
  - Anaemia [Recovered/Resolved]
  - Platelet count decreased [Recovering/Resolving]
  - Pyrexia [Recovered/Resolved]
  - Herpes simplex [Recovered/Resolved]
  - Lymphocyte count decreased [Recovering/Resolving]
  - Herpes zoster [Recovered/Resolved]
